FAERS Safety Report 18461570 (Version 1)
Quarter: 2020Q4

REPORT INFORMATION
  Report Type: Spontaneous
  Country: US (occurrence: US)
  Receive Date: 20201103
  Receipt Date: 20201103
  Transmission Date: 20210114
  Serious: Yes (Hospitalization)
  Sender: FDA-Public Use
  Company Number: None

PATIENT
  Age: 84 Year
  Sex: Female
  Weight: 56.82 kg

DRUGS (7)
  1. REMDESIVIR. [Suspect]
     Active Substance: REMDESIVIR
     Indication: COVID-19
     Dates: start: 20201031, end: 20201102
  2. ENOXAPARIN 60MG ONCE [Concomitant]
     Dates: start: 20201101, end: 20201101
  3. ASPIRIN 81MG [Concomitant]
     Active Substance: ASPIRIN
     Dates: start: 20201031, end: 20201102
  4. WARFARIN [Concomitant]
     Active Substance: WARFARIN
     Dates: start: 20201101, end: 20201101
  5. ASPIRIN 325MG [Concomitant]
     Active Substance: ASPIRIN
     Dates: start: 20201031, end: 20201031
  6. VIBRAMYCIN [Concomitant]
     Active Substance: DOXYCYCLINE
     Dates: start: 20201031, end: 20201102
  7. AZITHROMYCIN ANHYDROUS. [Concomitant]
     Active Substance: AZITHROMYCIN ANHYDROUS
     Dates: start: 20201031, end: 20201031

REACTIONS (4)
  - Aspartate aminotransferase increased [None]
  - Alanine aminotransferase increased [None]
  - Therapy cessation [None]
  - Anticoagulation drug level below therapeutic [None]

NARRATIVE: CASE EVENT DATE: 20201102
